FAERS Safety Report 9373374 (Version 2)
Quarter: 2013Q4

REPORT INFORMATION
  Report Type: Spontaneous
  Country: FR (occurrence: FR)
  Receive Date: 20130627
  Receipt Date: 20131024
  Transmission Date: 20140711
  Serious: Yes (Death, Life-Threatening, Hospitalization, Other)
  Sender: FDA-Public Use
  Company Number: FR-TEVA-415726ISR

PATIENT
  Age: 85 Year
  Sex: Female
  Weight: 40 kg

DRUGS (4)
  1. FUROSEMIDE 40MG [Suspect]
     Indication: CARDIAC FAILURE
     Route: 048
  2. COUMADIN [Concomitant]
     Dosage: 2 MILLIGRAM DAILY;
     Route: 048
  3. TRIATEC [Concomitant]
     Dosage: 2.5 MILLIGRAM DAILY;
     Route: 048
  4. DIGOXIN [Concomitant]
     Dosage: .25 MILLIGRAM DAILY;
     Route: 048

REACTIONS (6)
  - Acute pulmonary oedema [Fatal]
  - Cardiac failure [Fatal]
  - General physical health deterioration [Unknown]
  - Aphagia [Unknown]
  - Somnolence [Unknown]
  - Fatigue [Unknown]
